FAERS Safety Report 14147324 (Version 1)
Quarter: 2017Q4

REPORT INFORMATION
  Report Type: Report from Study
  Country: PK (occurrence: PK)
  Receive Date: 20171031
  Receipt Date: 20171031
  Transmission Date: 20180321
  Serious: Yes (Other)
  Sender: FDA-Public Use
  Company Number: PHHY2017PK157106

PATIENT
  Age: 33 Year
  Sex: Male
  Weight: 53 kg

DRUGS (2)
  1. TASIGNA [Suspect]
     Active Substance: NILOTINIB
     Indication: CHRONIC MYELOID LEUKAEMIA
     Dosage: 5 DF, (3 CAPSULE IN MORNING AND 2 CAPSULE IN MORNING)
     Route: 048
     Dates: start: 20170502, end: 20171019
  2. TASIGNA [Suspect]
     Active Substance: NILOTINIB
     Dosage: 600 MG, BID
     Route: 048
     Dates: start: 20171019

REACTIONS (3)
  - Leukocytosis [Unknown]
  - Overdose [Not Recovered/Not Resolved]
  - Thrombocytosis [Unknown]

NARRATIVE: CASE EVENT DATE: 20171019
